FAERS Safety Report 4759248-9 (Version None)
Quarter: 2005Q3

REPORT INFORMATION
  Report Type: 
  Country: None (occurrence: None)
  Receive Date: 20050831
  Receipt Date: 20050817
  Transmission Date: 20060218
  Serious: Yes (Death)
  Sender: FDA-Public Use
  Company Number: DSA_26899_2005

PATIENT
  Age: 19 Year
  Sex: Female

DRUGS (3)
  1. LORAZEPAM [Suspect]
     Dosage: DF ONCE PO
     Route: 048
     Dates: start: 20050816, end: 20050816
  2. FLUPENTIXOL [Suspect]
     Dosage: DF ONCE PO
     Route: 048
     Dates: start: 20050816, end: 20050816
  3. TRUXAL [Suspect]
     Dosage: DF ONCE PO
     Route: 048
     Dates: start: 20050816, end: 20050816

REACTIONS (2)
  - INTENTIONAL MISUSE [None]
  - OVERDOSE [None]
